FAERS Safety Report 8879174 (Version 1)
Quarter: 2012Q4

REPORT INFORMATION
  Report Type: Spontaneous
  Country: FR (occurrence: None)
  Receive Date: 20121026
  Receipt Date: 20121026
  Transmission Date: 20130627
  Serious: Yes (Other)
  Sender: FDA-Public Use
  Company Number: DSA_60139_2012

PATIENT
  Age: 87 Year
  Sex: Male

DRUGS (3)
  1. MONO TILDIEM [Suspect]
     Indication: PRODUCT USED FOR UNKNOWN INDICATION
     Route: 048
     Dates: start: 1993, end: 201209
  2. RIVOTRIL [Concomitant]
  3. SYBICORT [Concomitant]

REACTIONS (7)
  - Extrapyramidal disorder [None]
  - Tremor [None]
  - Musculoskeletal stiffness [None]
  - Gait disturbance [None]
  - Micturition urgency [None]
  - Eye disorder [None]
  - Salivary hypersecretion [None]
